FAERS Safety Report 21665218 (Version 1)
Quarter: 2022Q4

REPORT INFORMATION
  Report Type: Spontaneous
  Country: US (occurrence: US)
  Receive Date: 20221130
  Receipt Date: 20221130
  Transmission Date: 20230112
  Serious: No
  Sender: FDA-Public Use
  Company Number: US-BRISTOL-MYERS SQUIBB COMPANY-2022-145811

PATIENT

DRUGS (2)
  1. OPDIVO [Suspect]
     Active Substance: NIVOLUMAB
     Indication: Product used for unknown indication
     Route: 065
  2. CABOZANTINIB [Suspect]
     Active Substance: CABOZANTINIB
     Indication: Product used for unknown indication
     Route: 065

REACTIONS (3)
  - Diarrhoea [Unknown]
  - Hypertension [Unknown]
  - Transaminases [Unknown]
